FAERS Safety Report 9554362 (Version 1)
Quarter: 2013Q3

REPORT INFORMATION
  Report Type: Spontaneous
  Country: US (occurrence: US)
  Receive Date: 20130925
  Receipt Date: 20130925
  Transmission Date: 20140515
  Serious: Yes (Other)
  Sender: FDA-Public Use
  Company Number: US-ABBVIE-13P-163-1149604-00

PATIENT
  Age: 7 Year
  Sex: Female

DRUGS (1)
  1. LUPRON DEPOT-PED (3 MONTH) [Suspect]
     Indication: PRECOCIOUS PUBERTY
     Route: 050
     Dates: start: 201306

REACTIONS (2)
  - Injection site cellulitis [Not Recovered/Not Resolved]
  - Injection site abscess [Not Recovered/Not Resolved]
